FAERS Safety Report 12045587 (Version 1)
Quarter: 2016Q1

REPORT INFORMATION
  Report Type: Spontaneous
  Country: FR (occurrence: FR)
  Receive Date: 20160208
  Receipt Date: 20160208
  Transmission Date: 20160526
  Serious: Yes (Other)
  Sender: FDA-Public Use
  Company Number: FR-TEVA-630766ISR

PATIENT
  Age: 61 Year
  Sex: Male

DRUGS (9)
  1. METEOSPASMYL 20 MG [Concomitant]
     Dosage: 3 DOSAGE FORMS DAILY;
  2. OXYCONTIN [Suspect]
     Active Substance: OXYCODONE HYDROCHLORIDE
     Dosage: 2 DOSAGE FORMS DAILY;
     Route: 048
  3. ALPRAZOLAM 0.5 MG [Concomitant]
     Dosage: 2 DOSAGE FORMS DAILY;
  4. EFFENTORA 200 MCG [Suspect]
     Active Substance: FENTANYL CITRATE
     Dosage: 6 DOSAGE FORMS DAILY; 6 DF IN 1 DAY = 1200 MCG
     Route: 048
  5. IMETH 10 MG [Concomitant]
     Dosage: 1.5 DF PER WEEK
     Dates: start: 201511
  6. CITALOPRAM [Concomitant]
     Active Substance: CITALOPRAM HYDROBROMIDE
     Dosage: 2 DOSAGE FORMS DAILY;
  7. LYRICA 25 MG [Concomitant]
     Dosage: 3 DOSAGE FORMS DAILY;
  8. RIFINAH [Suspect]
     Active Substance: ISONIAZID\RIFAMPIN
     Dosage: 2 DOSAGE FORMS DAILY;
     Route: 048
     Dates: start: 20160105, end: 20160106
  9. INEXIUM 40 MG [Concomitant]
     Dosage: 1 DOSAGE FORMS DAILY;

REACTIONS (6)
  - Tremor [Recovered/Resolved]
  - Nervousness [Recovered/Resolved]
  - Chills [Recovered/Resolved]
  - Drug withdrawal syndrome [Recovering/Resolving]
  - Asthenia [Not Recovered/Not Resolved]
  - Pain in extremity [Recovered/Resolved]

NARRATIVE: CASE EVENT DATE: 20160106
